FAERS Safety Report 8764456 (Version 1)
Quarter: 2012Q4

REPORT INFORMATION
  Report Type: 
  Country: CA (occurrence: CA)
  Receive Date: 20120831
  Receipt Date: 20120831
  Transmission Date: 20130627
  Serious: Yes (Other)
  Sender: FDA-Public Use
  Company Number: CA-MYLANLABS-2012S1015821

PATIENT
  Age: 71 Year
  Sex: Female

DRUGS (2)
  1. NIFEDIPINE ER [Suspect]
     Indication: BLOOD PRESSURE
     Route: 048
     Dates: start: 20120608, end: 20120728
  2. RISEDRONATE [Concomitant]
     Dates: start: 20120724

REACTIONS (5)
  - Blood pressure increased [Recovered/Resolved]
  - Medication residue [Recovered/Resolved]
  - Lethargy [Recovered/Resolved]
  - Feeling abnormal [Recovered/Resolved]
  - Product substitution issue [None]
